FAERS Safety Report 9690626 (Version 1)
Quarter: 2013Q4

REPORT INFORMATION
  Report Type: Spontaneous
  Country: US (occurrence: None)
  Receive Date: 20131114
  Receipt Date: 20131114
  Transmission Date: 20140711
  Serious: Yes (Disabling)
  Sender: FDA-Public Use
  Company Number: None

PATIENT
  Age: 40 Year
  Sex: Female
  Weight: 68.04 kg

DRUGS (1)
  1. CIPROFLOXACIN 250MG BAYER [Suspect]
     Indication: URINARY TRACT INFECTION
     Dosage: CIPROFLOXACIN TWICE DAILY TAKEN BY MOUTH
     Route: 048
     Dates: start: 20060823, end: 20060901

REACTIONS (4)
  - Small fibre neuropathy [None]
  - Tinnitus [None]
  - Hyperacusis [None]
  - Nervous system disorder [None]
